FAERS Safety Report 4562385-5 (Version None)
Quarter: 2005Q1

REPORT INFORMATION
  Report Type: 
  Country: None (occurrence: None)
  Receive Date: 20050127
  Receipt Date: 20030923
  Transmission Date: 20050727
  Serious: No
  Sender: FDA-Public Use
  Company Number: US-BRISTOL-MYERS SQUIBB COMPANY-12392676

PATIENT
  Age: 81 Year
  Sex: Male
  Weight: 97 kg

DRUGS (7)
  1. KENALOG-10 [Suspect]
     Indication: PSORIASIS
     Route: 051
     Dates: start: 20030923, end: 20030923
  2. SODIUM CHLORIDE [Suspect]
     Route: 051
     Dates: start: 20030923, end: 20030923
  3. COUMADIN [Concomitant]
  4. PRILOSEC [Concomitant]
  5. PRAVACHOL [Concomitant]
  6. HYDROCHLOROTHIAZIDE [Concomitant]
  7. POTASSIUM [Concomitant]

REACTIONS (3)
  - EYE SWELLING [None]
  - LACRIMATION INCREASED [None]
  - SNEEZING [None]
